FAERS Safety Report 6579327-3 (Version None)
Quarter: 2010Q1

REPORT INFORMATION
  Report Type: 
  Country: None (occurrence: None)
  Receive Date: 20100209
  Receipt Date: 20100209
  Transmission Date: 20100710
  Serious: Yes (Other)
  Sender: FDA-Public Use
  Company Number: None

PATIENT
  Age: 34 Year
  Sex: Female
  Weight: 56.6996 kg

DRUGS (1)
  1. ZICAM ZINCUM GLUCOICM 2X MATRIXX INTIATIVES, INC. [Suspect]
     Indication: NASOPHARYNGITIS
     Dosage: GEL SWAB-NE SWAB PER NOSTRIL DURING COLDS NASAL
     Route: 045
     Dates: start: 20070115, end: 20100208

REACTIONS (1)
  - EPISTAXIS [None]
